FAERS Safety Report 21997521 (Version 11)
Quarter: 2024Q3

REPORT INFORMATION
  Report Type: Spontaneous
  Country: CA (occurrence: CA)
  Receive Date: 20230216
  Receipt Date: 20240816
  Transmission Date: 20241017
  Serious: Yes (Hospitalization, Other)
  Sender: CELLTRION
  Company Number: CA-CELLTRION INC.-2023CA000552

PATIENT

DRUGS (28)
  1. INFLECTRA [Suspect]
     Active Substance: INFLIXIMAB-DYYB
     Indication: Colitis ulcerative
     Dosage: 5 MG/KG,W0, W2, W6 AND EVERY 8 WEEKS
     Route: 042
     Dates: start: 20221220
  2. INFLECTRA [Suspect]
     Active Substance: INFLIXIMAB-DYYB
     Dosage: 5 MG/KG,W0, W2, W6 AND EVERY 8 WEEKS
     Route: 042
     Dates: start: 20221220
  3. INFLECTRA [Suspect]
     Active Substance: INFLIXIMAB-DYYB
     Dosage: 5 MG/KG,W0, W2, W6 AND EVERY 8 WEEKS
     Route: 042
     Dates: start: 20230104
  4. INFLECTRA [Suspect]
     Active Substance: INFLIXIMAB-DYYB
     Dosage: 465 MG, W6 ((5 MG/KG) W0,W2,W6 AND THEN Q8 WEEKS)
     Route: 042
     Dates: start: 20230215
  5. INFLECTRA [Suspect]
     Active Substance: INFLIXIMAB-DYYB
     Dosage: 465 MG, (5 MG/KG) W0,W2,W6 AND THEN Q8 WEEKS
     Route: 042
     Dates: start: 20230607
  6. INFLECTRA [Suspect]
     Active Substance: INFLIXIMAB-DYYB
     Dosage: 500 MG, EVERY 8 WEEKS
     Route: 042
     Dates: start: 20230802
  7. INFLECTRA [Suspect]
     Active Substance: INFLIXIMAB-DYYB
     Dosage: 495 MG,(5MG/KG) EVERY 8 WEEKS
     Route: 042
     Dates: start: 20230927, end: 20230927
  8. INFLECTRA [Suspect]
     Active Substance: INFLIXIMAB-DYYB
     Dosage: 5 MG/KG (ADDITIONAL DOSE )
     Route: 042
     Dates: start: 20231011, end: 20231011
  9. INFLECTRA [Suspect]
     Active Substance: INFLIXIMAB-DYYB
     Dosage: 5 MG/KG,(495MG, 2 WEEKS) ADDITIONAL DOSE
     Route: 042
     Dates: start: 20231011
  10. INFLECTRA [Suspect]
     Active Substance: INFLIXIMAB-DYYB
     Dosage: 7.5 MG/KG, EVERY 6 WEEK
     Route: 042
     Dates: start: 20231123
  11. INFLECTRA [Suspect]
     Active Substance: INFLIXIMAB-DYYB
     Dosage: 7.5 MG/KG, EVERY 6 WEEK ( 735 MG, AFTER 6 WEEKS)
     Route: 042
     Dates: start: 20240104
  12. INFLECTRA [Suspect]
     Active Substance: INFLIXIMAB-DYYB
     Dosage: 7.5 MG/KG, EVERY 6 WEEK ( 716MG , 6 WEEKS)
     Route: 042
     Dates: start: 20240214
  13. ADMELOG [Concomitant]
     Active Substance: INSULIN LISPRO
     Dosage: 1 DF
  14. CAL + D [Concomitant]
     Dosage: 1 DF
  15. CITALOPRAM [Concomitant]
     Active Substance: CITALOPRAM\CITALOPRAM HYDROBROMIDE
     Dosage: 1 DF
  16. CITALOPRAM [Concomitant]
     Active Substance: CITALOPRAM\CITALOPRAM HYDROBROMIDE
     Dosage: 40 MG
  17. HYDROCORTISONE [Concomitant]
     Active Substance: HYDROCORTISONE\HYDROCORTISONE ACETATE
     Dosage: 1 DF
  18. DOXYLAMINE [Concomitant]
     Active Substance: DOXYLAMINE
     Dosage: 1 DF
  19. ENTOCORT [Concomitant]
     Active Substance: BUDESONIDE
     Dosage: 1 DF (ENTOCORT LAVEMENT)
  20. FERROUS SULFATE [Concomitant]
     Active Substance: FERROUS SULFATE
     Dosage: 1 DF
  21. HUMULIN N [Concomitant]
     Active Substance: INSULIN HUMAN
     Dosage: 1 DF
  22. PREDNISONE [Concomitant]
     Active Substance: PREDNISONE
     Dosage: 1 DF
  23. PANTOPRAZOLE SODIUM [Concomitant]
     Active Substance: PANTOPRAZOLE SODIUM
     Dosage: 1 DF
  24. PANTOPRAZOLE SODIUM [Concomitant]
     Active Substance: PANTOPRAZOLE SODIUM
     Dosage: 40 MG
  25. PROCTOL [Concomitant]
     Dosage: 1 DF
  26. MESALAMINE [Concomitant]
     Active Substance: MESALAMINE
     Dosage: 1 DF
  27. TYLENOL [Concomitant]
     Active Substance: ACETAMINOPHEN
     Dosage: 1 DF
  28. ANGELIQ [Concomitant]
     Active Substance: DROSPIRENONE\ESTRADIOL
     Dosage: UNK

REACTIONS (16)
  - Sepsis [Recovered/Resolved]
  - Urinary tract infection [Recovered/Resolved]
  - Tendonitis [Recovering/Resolving]
  - Hypersensitivity [Recovered/Resolved]
  - Headache [Recovered/Resolved]
  - Chills [Not Recovered/Not Resolved]
  - Pyrexia [Not Recovered/Not Resolved]
  - Weight decreased [Not Recovered/Not Resolved]
  - Condition aggravated [Recovered/Resolved]
  - Proctitis [Not Recovered/Not Resolved]
  - Retained placenta or membranes [Unknown]
  - Cystitis bacterial [Recovered/Resolved]
  - Maternal exposure during pregnancy [Unknown]
  - Off label use [Unknown]
  - Off label use [Unknown]
  - Intentional product use issue [Unknown]

NARRATIVE: CASE EVENT DATE: 20221220
